FAERS Safety Report 9098544 (Version 1)
Quarter: 2013Q1

REPORT INFORMATION
  Report Type: Spontaneous
  Country: DE (occurrence: DE)
  Receive Date: 20130213
  Receipt Date: 20130213
  Transmission Date: 20140127
  Serious: Yes (Hospitalization, Disabling, Other)
  Sender: FDA-Public Use
  Company Number: GXKR2013DE000686

PATIENT
  Age: 78 Year
  Sex: Male
  Weight: 100 kg

DRUGS (5)
  1. SIMVASTATIN [Suspect]
     Indication: HYPERCHOLESTEROLAEMIA
     Dosage: 20 MG/DAY
     Route: 048
     Dates: start: 20121206, end: 201302
  2. METOPROLOL [Concomitant]
  3. AMLODIPINE [Concomitant]
  4. VALSARTAN [Concomitant]
  5. DOXAZOSIN [Concomitant]

REACTIONS (7)
  - Pancreatic insufficiency [Not Recovered/Not Resolved]
  - Blood creatinine increased [Unknown]
  - Pancreatitis [Recovered/Resolved with Sequelae]
  - Diarrhoea [Recovering/Resolving]
  - Nausea [Recovering/Resolving]
  - C-reactive protein increased [Unknown]
  - Muscle disorder [Unknown]
